FAERS Safety Report 23085977 (Version 1)
Quarter: 2023Q4

REPORT INFORMATION
  Report Type: Report from Study
  Country: US (occurrence: US)
  Receive Date: 20231019
  Receipt Date: 20231019
  Transmission Date: 20240110
  Serious: Yes (Hospitalization)
  Sender: FDA-Public Use
  Company Number: US-JAZZ PHARMACEUTICALS-2023-US-003537

PATIENT
  Age: 53 Year
  Sex: Female

DRUGS (5)
  1. XYWAV [Suspect]
     Active Substance: CALCIUM OXYBATE\MAGNESIUM OXYBATE\POTASSIUM OXYBATE\SODIUM OXYBATE
     Indication: Hypersomnia
     Dosage: UNK
     Route: 048
  2. CELECOXIB [Concomitant]
     Active Substance: CELECOXIB
     Indication: Product used for unknown indication
     Dosage: UNK
     Dates: start: 20230417
  3. INDOMETHACIN [Concomitant]
     Active Substance: INDOMETHACIN
     Indication: Product used for unknown indication
     Dosage: AS NEEDED
     Dates: start: 20221001
  4. IMVEXXY [Concomitant]
     Active Substance: ESTRADIOL
     Indication: Product used for unknown indication
     Dosage: UNK
     Dates: start: 20230703
  5. CLONAZEPAM [Concomitant]
     Active Substance: CLONAZEPAM
     Indication: Product used for unknown indication
     Dosage: 0.5 TABLET IN MORNING AND 0.5 TABLET IN EVENING IF NEEDED

REACTIONS (5)
  - Cardiac pacemaker insertion [Unknown]
  - Adverse drug reaction [Recovering/Resolving]
  - Gout [Unknown]
  - Hypotension [Unknown]
  - Pre-existing condition improved [Recovered/Resolved]

NARRATIVE: CASE EVENT DATE: 20230828
